FAERS Safety Report 9189343 (Version 2)
Quarter: 2013Q3

REPORT INFORMATION
  Report Type: Report from Study
  Country: US (occurrence: US)
  Receive Date: 20130326
  Receipt Date: 20130814
  Transmission Date: 20140515
  Serious: Yes (Hospitalization)
  Sender: FDA-Public Use
  Company Number: US-JNJFOC-20130309440

PATIENT
  Age: 17 Year
  Sex: Female
  Weight: 60 kg

DRUGS (5)
  1. INFLIXIMAB, RECOMBINANT [Suspect]
     Indication: CROHN^S DISEASE
     Route: 042
     Dates: start: 20090218
  2. INFLIXIMAB, RECOMBINANT [Suspect]
     Indication: CROHN^S DISEASE
     Route: 042
     Dates: end: 20121022
  3. INFLIXIMAB, RECOMBINANT [Suspect]
     Indication: CROHN^S DISEASE
     Route: 042
     Dates: start: 20120912
  4. VALACYCLOVIR [Concomitant]
     Route: 065
  5. HUMIRA [Concomitant]
     Route: 065
     Dates: start: 20121022

REACTIONS (1)
  - Aphthous stomatitis [Recovered/Resolved with Sequelae]
